FAERS Safety Report 9917844 (Version 1)
Quarter: 2014Q1

REPORT INFORMATION
  Report Type: Spontaneous
  Country: US (occurrence: US)
  Receive Date: 20140221
  Receipt Date: 20140221
  Transmission Date: 20141002
  Serious: Yes (Hospitalization)
  Sender: FDA-Public Use
  Company Number: US-GLAXOSMITHKLINE-A1061186A

PATIENT
  Age: 66 Year
  Sex: Female

DRUGS (14)
  1. CARISOPRODOL [Concomitant]
  2. ACETAMINOPHEN [Concomitant]
  3. LORAZEPAM [Concomitant]
  4. LEVOTHYROXINE [Concomitant]
  5. FLUOXETINE [Concomitant]
  6. LISINOPRIL + HYDROCHLOROTHIAZIDE [Concomitant]
  7. FLUTICASONE NASAL SPRAY [Concomitant]
  8. DESLORATADINE [Concomitant]
  9. PRILOSEC [Concomitant]
  10. OXYCODONE [Concomitant]
  11. PHENERGAN [Concomitant]
  12. DOCUSATE [Concomitant]
  13. ADVAIR [Suspect]
     Indication: ASTHMA
     Dosage: 1PUFF TWICE PER DAY
     Route: 055
     Dates: start: 201202
  14. PROVENTIL [Concomitant]

REACTIONS (2)
  - Neck surgery [Unknown]
  - Neck pain [Recovering/Resolving]
